FAERS Safety Report 5916725-2 (Version None)
Quarter: 2008Q4

REPORT INFORMATION
  Report Type: 
  Country: None (occurrence: None)
  Receive Date: 20081013
  Receipt Date: 20081007
  Transmission Date: 20090506
  Serious: Yes (Disabling, Other)
  Sender: FDA-Public Use
  Company Number: US-ELI_LILLY_AND_COMPANY-US200810001752

PATIENT
  Age: 52 Year
  Sex: Female

DRUGS (1)
  1. STRATTERA [Suspect]
     Dosage: 10 MG, UNKNOWN
     Route: 065
     Dates: start: 20080601

REACTIONS (2)
  - FALL [None]
  - JAW FRACTURE [None]
